FAERS Safety Report 24733977 (Version 2)
Quarter: 2025Q1

REPORT INFORMATION
  Report Type: Spontaneous
  Country: US (occurrence: US)
  Receive Date: 20241214
  Receipt Date: 20250210
  Transmission Date: 20250409
  Serious: No
  Sender: SANOFI AVENTIS
  Company Number: US-SA-2024SA365726

PATIENT
  Age: 37 Year
  Sex: Female
  Weight: 70.45 kg

DRUGS (1)
  1. DUPIXENT [Suspect]
     Active Substance: DUPILUMAB
     Indication: Eosinophilic oesophagitis
     Dosage: 300 MG, QW
     Route: 058
     Dates: start: 20241114

REACTIONS (12)
  - Influenza [Recovering/Resolving]
  - Nasopharyngitis [Recovering/Resolving]
  - Nasal congestion [Recovering/Resolving]
  - Oropharyngeal pain [Recovering/Resolving]
  - Dysphonia [Recovering/Resolving]
  - Eyelid margin crusting [Recovering/Resolving]
  - Upper-airway cough syndrome [Recovering/Resolving]
  - Throat irritation [Recovering/Resolving]
  - Respiratory tract infection [Unknown]
  - Sneezing [Unknown]
  - Paranasal sinus discomfort [Unknown]
  - Cough [Unknown]

NARRATIVE: CASE EVENT DATE: 20240101
